FAERS Safety Report 5535247-4 (Version None)
Quarter: 2007Q4

REPORT INFORMATION
  Report Type: 
  Country: None (occurrence: None)
  Receive Date: 20071206
  Receipt Date: 20071203
  Transmission Date: 20080405
  Serious: Yes (Other)
  Sender: FDA-Public Use
  Company Number: CA-JNJFOC-20060703121

PATIENT
  Age: 68 Year
  Sex: Male

DRUGS (11)
  1. RISPERDAL [Suspect]
  2. RISPERDAL [Suspect]
  3. RISPERDAL [Suspect]
     Indication: SCHIZOPHRENIA
  4. NOVAMOXIN [Concomitant]
     Indication: DRUG USE FOR UNKNOWN INDICATION
     Dates: start: 20030613, end: 20030911
  5. TEQUIN [Concomitant]
     Indication: DRUG USE FOR UNKNOWN INDICATION
  6. AMOXICILLIN [Concomitant]
     Indication: PNEUMONIA
  7. AUGMENTIN [Concomitant]
     Indication: DRUG USE FOR UNKNOWN INDICATION
  8. ZITHROMAX [Concomitant]
  9. ZYPREXA [Concomitant]
  10. BIAXIN [Concomitant]
  11. STELAZINE [Concomitant]

REACTIONS (8)
  - CHEST DISCOMFORT [None]
  - INFLUENZA [None]
  - LYMPHOCYTE COUNT DECREASED [None]
  - PNEUMONIA [None]
  - RED BLOOD CELL COUNT DECREASED [None]
  - RESPIRATORY TRACT INFECTION [None]
  - SLEEP INERTIA [None]
  - WHITE BLOOD CELL COUNT DECREASED [None]
